FAERS Safety Report 4423574-3 (Version None)
Quarter: 2004Q3

REPORT INFORMATION
  Report Type: 
  Country: None (occurrence: None)
  Receive Date: 20040714
  Receipt Date: 20040323
  Transmission Date: 20050211
  Serious: Yes (Hospitalization)
  Sender: FDA-Public Use
  Company Number: 200411408US

PATIENT
  Age: 59 Year
  Sex: Female

DRUGS (5)
  1. TAXOTERE [Suspect]
     Indication: BREAST CANCER
     Dosage: 65 MG
  2. TAXOTERE [Suspect]
  3. REGLAN [Concomitant]
  4. PREVACID [Concomitant]
  5. IPRATROPIUM BROMIDE, SALBUTAMOL SULFATE (COMBIVENT) [Concomitant]

REACTIONS (2)
  - PALMAR-PLANTAR ERYTHRODYSAESTHESIA SYNDROME [None]
  - SKIN CHAPPED [None]
